FAERS Safety Report 22400502 (Version 1)
Quarter: 2023Q2

REPORT INFORMATION
  Report Type: Spontaneous
  Country: US (occurrence: US)
  Receive Date: 20230602
  Receipt Date: 20230602
  Transmission Date: 20230722
  Serious: Yes (Other)
  Sender: FDA-Public Use
  Company Number: US-TEVA-2023-US-2891424

PATIENT
  Age: 69 Year
  Sex: Female

DRUGS (1)
  1. CLONAZEPAM [Suspect]
     Active Substance: CLONAZEPAM
     Indication: Anxiety
     Dosage: DOSE:2 MG
     Route: 065

REACTIONS (5)
  - Urinary retention [Unknown]
  - Feeling abnormal [Unknown]
  - Headache [Unknown]
  - Product use in unapproved indication [Unknown]
  - Illness [Unknown]
